FAERS Safety Report 7929893-8 (Version None)
Quarter: 2011Q4

REPORT INFORMATION
  Report Type: 
  Country: None (occurrence: None)
  Receive Date: 20111121
  Receipt Date: 20111116
  Transmission Date: 20120403
  Serious: No
  Sender: FDA-Public Use
  Company Number: US-PFIZER INC-2011235834

PATIENT
  Sex: Male

DRUGS (2)
  1. XALKORI [Suspect]
     Indication: LUNG NEOPLASM MALIGNANT
     Dosage: 250 MG, 2X/DAY
     Dates: start: 20110912
  2. COUMADIN [Concomitant]
     Dosage: 10 MG, 1X/DAY

REACTIONS (3)
  - PHOTOPHOBIA [None]
  - VISION BLURRED [None]
  - PHOTOPSIA [None]
